FAERS Safety Report 10037306 (Version 1)
Quarter: 2014Q1

REPORT INFORMATION
  Report Type: Spontaneous
  Country: US (occurrence: None)
  Receive Date: 20140325
  Receipt Date: 20140325
  Transmission Date: 20141002
  Serious: Yes (Hospitalization, Disabling)
  Sender: FDA-Public Use
  Company Number: None

PATIENT
  Age: 51 Year
  Sex: Male
  Weight: 77.11 kg

DRUGS (2)
  1. AXIRON [Suspect]
     Indication: BODY TEMPERATURE DECREASED
     Dosage: 2PUMPS PER ARM PIT, ONCE DIALY, APPLIED TO A SURFACE, USUALLY THE SKIN
     Dates: start: 20131228, end: 20140128
  2. AXIRON [Suspect]
     Indication: ASTHENIA
     Dosage: 2PUMPS PER ARM PIT, ONCE DIALY, APPLIED TO A SURFACE, USUALLY THE SKIN
     Dates: start: 20131228, end: 20140128

REACTIONS (2)
  - Cerebrovascular accident [None]
  - Convulsion [None]
